FAERS Safety Report 19469256 (Version 5)
Quarter: 2023Q2

REPORT INFORMATION
  Report Type: Spontaneous
  Country: US (occurrence: None)
  Receive Date: 20210629
  Receipt Date: 20230614
  Transmission Date: 20230722
  Serious: Yes (Hospitalization, Other)
  Sender: FDA-Public Use
  Company Number: US-FARMAPROD-202106-0956

PATIENT
  Age: 39 Year
  Sex: Female

DRUGS (15)
  1. OXERVATE [Suspect]
     Active Substance: CENEGERMIN-BKBJ
     Indication: Neurotrophic keratopathy
     Route: 047
     Dates: start: 20210325, end: 202105
  2. OXERVATE [Suspect]
     Active Substance: CENEGERMIN-BKBJ
     Route: 047
     Dates: start: 202105, end: 20210720
  3. OXERVATE [Suspect]
     Active Substance: CENEGERMIN-BKBJ
     Route: 047
     Dates: start: 20210721, end: 20210915
  4. OXERVATE [Suspect]
     Active Substance: CENEGERMIN-BKBJ
     Route: 047
     Dates: start: 20210916, end: 20211115
  5. OXERVATE [Suspect]
     Active Substance: CENEGERMIN-BKBJ
     Dosage: 3 TIMES DAILY FROM 02/MAY/2023 TO 11/MAY/2023
     Route: 047
     Dates: start: 20230427, end: 20230511
  6. VANCOMYCIN HYDROCHLORIDE [Concomitant]
     Active Substance: VANCOMYCIN HYDROCHLORIDE
     Dosage: WITH 0.9% SALINE SOLUTION
  7. DEXAMETHASONE [Concomitant]
     Active Substance: DEXAMETHASONE
  8. TRAZODONE HCL [Concomitant]
     Active Substance: TRAZODONE HYDROCHLORIDE
  9. VALACYCLOVIR [Concomitant]
     Active Substance: VALACYCLOVIR HYDROCHLORIDE
     Route: 048
     Dates: start: 2020
  10. ATIVAN [Concomitant]
     Active Substance: LORAZEPAM
  11. GABAPENTIN [Concomitant]
     Active Substance: GABAPENTIN
  12. DIFLUPREDNATE [Concomitant]
     Active Substance: DIFLUPREDNATE
     Dates: start: 20220922
  13. MOXIFLOXACIN [Concomitant]
     Active Substance: MOXIFLOXACIN
     Dates: start: 20220922
  14. BETADINE [Concomitant]
     Active Substance: POVIDONE-IODINE
     Dates: start: 202212
  15. PRESERVATIVE FREE TEARS [Concomitant]

REACTIONS (7)
  - Illness [Unknown]
  - Depression [Unknown]
  - Off label use [Unknown]
  - Herpes ophthalmic [Unknown]
  - Eye pain [Not Recovered/Not Resolved]
  - Product storage error [Unknown]
  - Condition aggravated [Unknown]

NARRATIVE: CASE EVENT DATE: 20210616
